FAERS Safety Report 7371173-6 (Version None)
Quarter: 2011Q1

REPORT INFORMATION
  Report Type: 
  Country: None (occurrence: None)
  Receive Date: 20110314
  Receipt Date: 20110303
  Transmission Date: 20110831
  Serious: Yes (Other)
  Sender: FDA-Public Use
  Company Number: 027244

PATIENT
  Age: 25 Year
  Sex: Female

DRUGS (4)
  1. CEREKINON [Concomitant]
  2. OMEPRAZOLE [Concomitant]
  3. XYZAL [Suspect]
     Dosage: (5 MG QD ORAL)
     Route: 048
     Dates: start: 20110201, end: 20110204
  4. CLOSTRIDIUM BUTYRICUM [Concomitant]

REACTIONS (6)
  - ABDOMINAL DISCOMFORT [None]
  - URTICARIA [None]
  - DYSPNOEA [None]
  - MALAISE [None]
  - SOMNOLENCE [None]
  - ECZEMA [None]
